FAERS Safety Report 4657472-7 (Version None)
Quarter: 2005Q2

REPORT INFORMATION
  Report Type: 
  Country: None (occurrence: None)
  Receive Date: 20050509
  Receipt Date: 20050509
  Transmission Date: 20051028
  Serious: Yes (Hospitalization)
  Sender: FDA-Public Use
  Company Number: None

PATIENT
  Sex: Male

DRUGS (12)
  1. ZOCOR [Suspect]
     Indication: HYPERLIPIDAEMIA
     Dosage: 80 MG DAILY ORAL
     Route: 048
     Dates: start: 20040701, end: 20050418
  2. GEMFIBROZIL [Concomitant]
  3. FUROSEMIDE [Concomitant]
  4. TESTOSTERONE [Concomitant]
  5. CLOPIDOGREL BISULFATE [Concomitant]
  6. DOCUSATE [Concomitant]
  7. FA [Concomitant]
  8. NPH INSULIN [Concomitant]
  9. ISOSORBIDE [Concomitant]
  10. LISINOPRIL [Concomitant]
  11. METOPROLOL [Concomitant]
  12. QUININE SULFATE [Concomitant]

REACTIONS (2)
  - DEHYDRATION [None]
  - RHABDOMYOLYSIS [None]
